FAERS Safety Report 16176990 (Version 2)
Quarter: 2019Q2

REPORT INFORMATION
  Report Type: Report from Study
  Country: None (occurrence: US)
  Receive Date: 20190409
  Receipt Date: 20190508
  Transmission Date: 20190711
  Serious: Yes (Life-Threatening, Hospitalization)
  Sender: FDA-Public Use
  Company Number: US-ABBVIE-19K-163-2736888-00

PATIENT
  Age: 53 Year
  Sex: Male

DRUGS (1)
  1. MAVYRET [Suspect]
     Active Substance: GLECAPREVIR\PIBRENTASVIR
     Indication: PRODUCT USED FOR UNKNOWN INDICATION
     Route: 048
     Dates: start: 20190213, end: 201904

REACTIONS (4)
  - Nausea [Not Recovered/Not Resolved]
  - Pancreatic carcinoma stage IV [Not Recovered/Not Resolved]
  - Bile duct obstruction [Unknown]
  - Hepatic vascular thrombosis [Unknown]

NARRATIVE: CASE EVENT DATE: 201903
